FAERS Safety Report 4642629-1 (Version None)
Quarter: 2005Q2

REPORT INFORMATION
  Report Type: 
  Country: None (occurrence: None)
  Receive Date: 20050422
  Receipt Date: 20050406
  Transmission Date: 20051028
  Serious: Yes (Hospitalization, Other)
  Sender: FDA-Public Use
  Company Number: PHBS2005JP04980

PATIENT
  Age: 82 Year
  Sex: Male

DRUGS (5)
  1. CARBAMAZEPINE [Suspect]
     Indication: EPILEPSY
     Dosage: 400 MG/DAY
     Route: 065
     Dates: start: 20010101, end: 20010626
  2. CARBAMAZEPINE [Suspect]
     Dosage: 1000 MG/DAY
     Dates: start: 20020601, end: 20020101
  3. NILVADIPINE [Concomitant]
  4. ATENOLOL [Concomitant]
  5. TICLOPIDINE HCL [Concomitant]

REACTIONS (24)
  - ALANINE AMINOTRANSFERASE INCREASED [None]
  - ANOREXIA [None]
  - ASPARTATE AMINOTRANSFERASE INCREASED [None]
  - BLOOD ALKALINE PHOSPHATASE INCREASED [None]
  - BLOOD UREA INCREASED [None]
  - BRONCHOALVEOLAR LAVAGE ABNORMAL [None]
  - C-REACTIVE PROTEIN INCREASED [None]
  - CARDIOMEGALY [None]
  - CHEST X-RAY ABNORMAL [None]
  - COMPUTERISED TOMOGRAM ABNORMAL [None]
  - GAMMA-GLUTAMYLTRANSFERASE INCREASED [None]
  - HEART RATE IRREGULAR [None]
  - HEPATIC FUNCTION ABNORMAL [None]
  - HYPOCAPNIA [None]
  - HYPOXIA [None]
  - LABORATORY TEST ABNORMAL [None]
  - LIVER DISORDER [None]
  - LYMPHADENOPATHY MEDIASTINAL [None]
  - LYMPHOCYTOSIS [None]
  - MALAISE [None]
  - PLEURAL EFFUSION [None]
  - PNEUMONITIS [None]
  - PYREXIA [None]
  - RENAL IMPAIRMENT [None]
